FAERS Safety Report 8005769-5 (Version None)
Quarter: 2011Q4

REPORT INFORMATION
  Report Type: 
  Country: None (occurrence: None)
  Receive Date: 20111223
  Receipt Date: 20111215
  Transmission Date: 20120403
  Serious: Yes (Hospitalization)
  Sender: FDA-Public Use
  Company Number: US-CELGENEUS-163-21880-11122002

PATIENT
  Sex: Male

DRUGS (14)
  1. ALBUTEROL [Concomitant]
     Route: 065
  2. PRILOSEC [Concomitant]
     Route: 065
  3. EXJADE [Concomitant]
     Route: 065
  4. FOLIC ACID [Concomitant]
     Route: 065
  5. REVLIMID [Suspect]
     Dosage: 10 MILLIGRAM
     Route: 048
     Dates: start: 20110211
  6. NITROGLYCERIN [Concomitant]
     Route: 065
  7. XANAX [Concomitant]
     Route: 065
  8. MULTI-VITAMINS [Concomitant]
     Route: 065
  9. SPIRIVA [Concomitant]
     Route: 065
  10. WELLBUTRIN [Concomitant]
     Route: 065
  11. ASPIRIN [Concomitant]
     Route: 065
  12. ISOSORB [Concomitant]
     Route: 065
  13. TOPROL-XL [Concomitant]
     Route: 065
  14. CRESTOR [Concomitant]
     Route: 065

REACTIONS (1)
  - LABORATORY TEST ABNORMAL [None]
